FAERS Safety Report 5897594-6 (Version None)
Quarter: 2008Q3

REPORT INFORMATION
  Report Type: 
  Country: None (occurrence: None)
  Receive Date: 20080829
  Receipt Date: 20080519
  Transmission Date: 20090109
  Serious: Yes (Hospitalization)
  Sender: FDA-Public Use
  Company Number: PHEH2008US02530

PATIENT
  Age: 77 Year
  Sex: Male

DRUGS (5)
  1. EXJADE [Suspect]
     Indication: IRON OVERLOAD
     Dosage: 2000 MG DAILY, ORAL
     Route: 048
     Dates: start: 20070413, end: 20070506
  2. EXJADE [Suspect]
     Indication: IRON OVERLOAD
     Dosage: 2000 MG DAILY, ORAL
     Route: 048
     Dates: start: 20070525
  3. HUMALOG [Concomitant]
  4. PLAVIX [Concomitant]
  5. COREG [Concomitant]

REACTIONS (8)
  - ASTHENIA [None]
  - DYSPNOEA [None]
  - HYPERSENSITIVITY [None]
  - MALAISE [None]
  - PALPITATIONS [None]
  - PRURITUS [None]
  - PYREXIA [None]
  - RASH ERYTHEMATOUS [None]
